FAERS Safety Report 6304907-X (Version None)
Quarter: 2009Q3

REPORT INFORMATION
  Report Type: 
  Country: None (occurrence: None)
  Receive Date: 20090811
  Receipt Date: 20090731
  Transmission Date: 20100115
  Serious: Yes (Death)
  Sender: FDA-Public Use
  Company Number: US-ELI_LILLY_AND_COMPANY-US200905000755

PATIENT
  Age: 60 Year
  Sex: Male

DRUGS (2)
  1. SYMBYAX [Suspect]
     Dosage: 1 D/F, DAILY (1/D)
  2. INSULIN [Suspect]
     Indication: DIABETES MELLITUS

REACTIONS (1)
  - RENAL FAILURE [None]
